FAERS Safety Report 4805357-5 (Version None)
Quarter: 2005Q4

REPORT INFORMATION
  Report Type: 
  Country: None (occurrence: None)
  Receive Date: 20051017
  Receipt Date: 20051003
  Transmission Date: 20060501
  Serious: Yes (Other)
  Sender: FDA-Public Use
  Company Number: 2005129534

PATIENT
  Age: 71 Year
  Sex: Female
  Weight: 74.8435 kg

DRUGS (7)
  1. BENADRYL [Suspect]
     Indication: RASH
     Dosage: ORAL
     Route: 048
     Dates: start: 20050422, end: 20050424
  2. CALADRYL [Suspect]
     Indication: RASH
     Dosage: TOPICAL
     Route: 061
     Dates: start: 20050422, end: 20050424
  3. ENALAPRIL MALEATE          (ENALAPRAIL MALEATE) [Concomitant]
  4. ASPIRIN [Concomitant]
  5. MULTIVITAMINS (ASCORBIC ACID, ERGOCALICIFEROL, FOLIC ACID, NICOTINAMID [Concomitant]
  6. CALCIUM WITH VITAMIN D [Concomitant]
  7. PARACETAMOL (PARACETAMOL) [Concomitant]

REACTIONS (1)
  - THROAT TIGHTNESS [None]
